FAERS Safety Report 24103012 (Version 1)
Quarter: 2024Q3

REPORT INFORMATION
  Report Type: Report from Study
  Country: US (occurrence: None)
  Receive Date: 20240717
  Receipt Date: 20240717
  Transmission Date: 20241017
  Serious: Yes (Other)
  Sender: ASTRAZENECA
  Company Number: 2020SE48171

PATIENT
  Sex: Female

DRUGS (22)
  1. TAGRISSO [Suspect]
     Active Substance: OSIMERTINIB
     Indication: Lung neoplasm malignant
     Route: 048
     Dates: start: 202003
  2. ADVIL [Concomitant]
     Active Substance: IBUPROFEN\IBUPROFEN SODIUM
  3. ATIVAN [Concomitant]
     Active Substance: LORAZEPAM
  4. BIOTIN [Concomitant]
     Active Substance: BIOTIN
  5. CRANBERRY [Concomitant]
     Active Substance: CRANBERRY
  6. FLUTICASONE PROPIONATE [Concomitant]
     Active Substance: FLUTICASONE PROPIONATE
  7. GAS-X [Concomitant]
     Active Substance: DIMETHICONE
  8. JANUVIA [Concomitant]
     Active Substance: SITAGLIPTIN PHOSPHATE
  9. LACTASE [Concomitant]
     Active Substance: LACTASE
  10. LOMOTIL [Concomitant]
     Active Substance: ATROPINE SULFATE\DIPHENOXYLATE HYDROCHLORIDE
  11. LYSINE [Concomitant]
     Active Substance: LYSINE
  12. MAGNESIUM [Concomitant]
     Active Substance: MAGNESIUM
  13. METAMUCIL [Concomitant]
     Active Substance: PLANTAGO SEED
  14. PANTOPRAZOLE SODIUM [Concomitant]
     Active Substance: PANTOPRAZOLE SODIUM
  15. MINERALS\VITAMINS [Concomitant]
     Active Substance: MINERALS\VITAMINS
  16. PROBIOTIC FORMULA [Concomitant]
  17. SUCRALFATE [Concomitant]
     Active Substance: SUCRALFATE
  18. VITAMIN B12 [Concomitant]
     Active Substance: CYANOCOBALAMIN
  19. VITAMIN D3 [Concomitant]
     Active Substance: CHOLECALCIFEROL
  20. VITAMIN E [Concomitant]
     Active Substance: .ALPHA.-TOCOPHEROL
  21. ZOLOFT [Concomitant]
     Active Substance: SERTRALINE HYDROCHLORIDE
  22. ZYRTEC [Concomitant]
     Active Substance: CETIRIZINE HYDROCHLORIDE

REACTIONS (3)
  - Rheumatoid arthritis [Unknown]
  - Rash papular [Unknown]
  - Sluggishness [Unknown]
